FAERS Safety Report 5448141-4 (Version None)
Quarter: 2007Q3

REPORT INFORMATION
  Report Type: 
  Country: None (occurrence: None)
  Receive Date: 20070803
  Receipt Date: 20070604
  Transmission Date: 20080115
  Serious: No
  Sender: FDA-Public Use
  Company Number: 200711723BWH

PATIENT
  Age: 59 Year
  Sex: Female

DRUGS (1)
  1. NEXAVAR [Suspect]
     Dosage: 400 MG, BID, ORAL
     Route: 048

REACTIONS (3)
  - GLOSSODYNIA [None]
  - ORAL PAIN [None]
  - RASH GENERALISED [None]
